FAERS Safety Report 12847658 (Version 2)
Quarter: 2016Q4

REPORT INFORMATION
  Report Type: Spontaneous
  Country: US (occurrence: US)
  Receive Date: 20161014
  Receipt Date: 20161130
  Transmission Date: 20170207
  Serious: No
  Sender: FDA-Public Use
  Company Number: US-PFIZER INC-2016478068

PATIENT
  Age: 71 Year
  Sex: Female

DRUGS (6)
  1. NEURONTIN [Suspect]
     Active Substance: GABAPENTIN
     Indication: PAIN
     Dosage: 300 MG, 1X/DAY
     Dates: start: 201512
  2. NEURONTIN [Suspect]
     Active Substance: GABAPENTIN
     Indication: BACK PAIN
     Dosage: 200 MG, 1X/DAY
  3. SYNTHROID [Concomitant]
     Active Substance: LEVOTHYROXINE SODIUM
     Indication: HYPOTHYROIDISM
     Dosage: 25 UG, 1X/DAY (IN AM)
     Dates: start: 201608
  4. SYNTHROID [Concomitant]
     Active Substance: LEVOTHYROXINE SODIUM
     Dosage: 37.5 UG, 1X/DAY (IN AM)
  5. PROGESTERONE. [Concomitant]
     Active Substance: PROGESTERONE
     Dosage: 125 MG, 1X/DAY (IN EVENING)
  6. VIVELLE [Concomitant]
     Active Substance: ESTRADIOL
     Dosage: UNK, 2X/WEEK
     Route: 062

REACTIONS (2)
  - Product use issue [Unknown]
  - Blood thyroid stimulating hormone increased [Not Recovered/Not Resolved]

NARRATIVE: CASE EVENT DATE: 201512
